FAERS Safety Report 5067734-X (Version None)
Quarter: 2006Q3

REPORT INFORMATION
  Report Type: 
  Country: None (occurrence: None)
  Receive Date: 20060706
  Receipt Date: 20060414
  Transmission Date: 20061208
  Serious: No
  Sender: FDA-Public Use
  Company Number: 200511577BWH

PATIENT
  Age: 68 Year
  Sex: Male

DRUGS (10)
  1. LEVITRA [Suspect]
     Indication: ERECTILE DYSFUNCTION
     Dosage: 20 MG QW ORAL ; 20 MG TOTAL DAILY ORAL ; 5 MG QW ORAL ; 5 MG QW ORAL ; 10 MG QW ORAL ; 10 MG QW ORAL
     Route: 048
     Dates: start: 20050101
  2. LEVITRA [Suspect]
     Indication: ERECTILE DYSFUNCTION
     Dosage: 20 MG QW ORAL ; 20 MG TOTAL DAILY ORAL ; 5 MG QW ORAL ; 5 MG QW ORAL ; 10 MG QW ORAL ; 10 MG QW ORAL
     Route: 048
     Dates: start: 20050101
  3. LEVITRA [Suspect]
     Indication: ERECTILE DYSFUNCTION
     Dosage: 20 MG QW ORAL ; 20 MG TOTAL DAILY ORAL ; 5 MG QW ORAL ; 5 MG QW ORAL ; 10 MG QW ORAL ; 10 MG QW ORAL
     Route: 048
     Dates: start: 20050701
  4. LEVITRA [Suspect]
     Indication: ERECTILE DYSFUNCTION
     Dosage: 20 MG QW ORAL ; 20 MG TOTAL DAILY ORAL ; 5 MG QW ORAL ; 5 MG QW ORAL ; 10 MG QW ORAL ; 10 MG QW ORAL
     Route: 048
     Dates: start: 20050701
  5. LEVITRA [Suspect]
     Indication: ERECTILE DYSFUNCTION
     Dosage: 20 MG QW ORAL ; 20 MG TOTAL DAILY ORAL ; 5 MG QW ORAL ; 5 MG QW ORAL ; 10 MG QW ORAL ; 10 MG QW ORAL
     Route: 048
     Dates: start: 20050701
  6. LEVITRA [Suspect]
     Indication: ERECTILE DYSFUNCTION
     Dosage: 20 MG QW ORAL ; 20 MG TOTAL DAILY ORAL ; 5 MG QW ORAL ; 5 MG QW ORAL ; 10 MG QW ORAL ; 10 MG QW ORAL
     Route: 048
     Dates: start: 20050701
  7. LEVITRA [Suspect]
     Indication: ERECTILE DYSFUNCTION
     Dosage: 20 MG QW ORAL ; 20 MG TOTAL DAILY ORAL ; 5 MG QW ORAL ; 5 MG QW ORAL ; 10 MG QW ORAL ; 10 MG QW ORAL
     Route: 048
     Dates: start: 20060311
  8. NIFEDIPINE [Concomitant]
  9. HYTRIN [Concomitant]
  10. FLURAZEPAM [Concomitant]

REACTIONS (4)
  - ERECTILE DYSFUNCTION [None]
  - HEADACHE [None]
  - PHOTOPHOBIA [None]
  - SPONTANEOUS PENILE ERECTION [None]
